FAERS Safety Report 23403898 (Version 3)
Quarter: 2024Q1

REPORT INFORMATION
  Report Type: Spontaneous
  Country: US (occurrence: US)
  Receive Date: 20240116
  Receipt Date: 20240212
  Transmission Date: 20240410
  Serious: No
  Sender: FDA-Public Use
  Company Number: US-OPELLA-2024OHG001192

PATIENT
  Sex: Male

DRUGS (1)
  1. ICY HOT WITH LIDOCAINE PAIN RELIEVING [Suspect]
     Active Substance: LIDOCAINE\MENTHOL
     Indication: Product used for unknown indication
     Route: 065

REACTIONS (2)
  - Drug ineffective [Unknown]
  - No adverse event [Unknown]
